FAERS Safety Report 8426684-9 (Version None)
Quarter: 2012Q2

REPORT INFORMATION
  Report Type: 
  Country: None (occurrence: None)
  Receive Date: 20120611
  Receipt Date: 20120606
  Transmission Date: 20120825
  Serious: Yes (Other)
  Sender: FDA-Public Use
  Company Number: FR-PFIZER INC-2012077833

PATIENT
  Age: 65 Year
  Sex: Female

DRUGS (1)
  1. ATORVASTATIN [Suspect]
     Dosage: 20 MG, 1X/DAY
     Route: 048
     Dates: start: 20050101, end: 20120301

REACTIONS (2)
  - TENDON INJURY [None]
  - SURGERY [None]
